FAERS Safety Report 8544993-X (Version None)
Quarter: 2012Q3

REPORT INFORMATION
  Report Type: 
  Country: None (occurrence: None)
  Receive Date: 20120727
  Receipt Date: 20120720
  Transmission Date: 20120928
  Serious: Yes (Death)
  Sender: FDA-Public Use
  Company Number: US-GLAXOSMITHKLINE-A0987100A

PATIENT
  Age: 51 Year
  Sex: Male

DRUGS (1)
  1. HYCAMTIN [Suspect]
     Indication: CARCINOID TUMOUR PULMONARY
     Dosage: 5MG PER DAY
     Route: 048
     Dates: start: 20120323, end: 20120501

REACTIONS (1)
  - DEATH [None]
